FAERS Safety Report 9146511 (Version 1)
Quarter: 2013Q1

REPORT INFORMATION
  Report Type: Spontaneous
  Country: US (occurrence: US)
  Receive Date: 20130307
  Receipt Date: 20130307
  Transmission Date: 20140127
  Serious: No
  Sender: FDA-Public Use
  Company Number: US-GLAXOSMITHKLINE-A0987560A

PATIENT
  Age: 66 Year
  Sex: Female

DRUGS (2)
  1. ROPINIROLE [Suspect]
     Indication: DYSKINESIA
     Route: 048
     Dates: start: 2007
  2. BLOOD PRESSURE MEDICATION [Concomitant]

REACTIONS (1)
  - Drug ineffective [Recovering/Resolving]
